FAERS Safety Report 6916812-6 (Version None)
Quarter: 2010Q3

REPORT INFORMATION
  Report Type: 
  Country: None (occurrence: None)
  Receive Date: 20100810
  Receipt Date: 20100803
  Transmission Date: 20110219
  Serious: Yes (Life-Threatening, Hospitalization)
  Sender: FDA-Public Use
  Company Number: US-SANOFI-AVENTIS-2010SA041669

PATIENT
  Age: 79 Year
  Sex: Female

DRUGS (9)
  1. PLAVIX [Suspect]
     Route: 048
     Dates: start: 20100510, end: 20100622
  2. ASPIRIN [Suspect]
     Route: 065
  3. ISOSORBIDE [Concomitant]
  4. FUROSEMIDE [Concomitant]
  5. K-TAB [Concomitant]
  6. LISINOPRIL [Concomitant]
  7. SIMVASTATIN [Concomitant]
  8. LEVOTHYROXINE SODIUM [Concomitant]
  9. CARVEDILOL [Concomitant]

REACTIONS (2)
  - IN-STENT CORONARY ARTERY RESTENOSIS [None]
  - NO THERAPEUTIC RESPONSE [None]
